FAERS Safety Report 8098152-8 (Version None)
Quarter: 2012Q1

REPORT INFORMATION
  Report Type: 
  Country: None (occurrence: None)
  Receive Date: 20120128
  Receipt Date: 20110817
  Transmission Date: 20120608
  Serious: No
  Sender: FDA-Public Use
  Company Number: US-ABBOTT-11P-163-0847632-00

PATIENT
  Age: 49 Year
  Sex: Female

DRUGS (18)
  1. MAXZIDE [Concomitant]
     Indication: HYPERTENSION
     Dosage: 75/50MG DAILY
  2. DEPLIN [Concomitant]
     Indication: PRODUCT USED FOR UNKNOWN INDICATION
     Dosage: 75MG DAILY
  3. VITAMIN D [Concomitant]
     Indication: PRODUCT USED FOR UNKNOWN INDICATION
     Dosage: DAILY
  4. ACIPHEX [Concomitant]
     Indication: GASTROOESOPHAGEAL REFLUX DISEASE
     Dosage: 20MG DAILY
  5. TOPROL-XL [Concomitant]
     Indication: HYPERTENSION
     Dosage: DAILY
  6. CELEXA [Concomitant]
     Indication: PAIN
     Dosage: 10MG DAILY
  7. THYROID TAB [Concomitant]
     Indication: HYPOTHYROIDISM
     Dosage: DAILY
  8. CALCIUM [Concomitant]
     Indication: PRODUCT USED FOR UNKNOWN INDICATION
  9. VITAMIN B-12 [Concomitant]
     Indication: PRODUCT USED FOR UNKNOWN INDICATION
     Dosage: WEEKLY
  10. HUMIRA [Suspect]
     Indication: PSORIATIC ARTHROPATHY
     Dates: start: 20110720
  11. AMBIEN HR [Concomitant]
     Indication: INSOMNIA
     Dosage: NIGHTLY
  12. ULTRAM ER [Concomitant]
     Indication: PAIN
     Dosage: 1-2 TIMES DAILY
  13. MULTI-VITAMIN [Concomitant]
     Indication: PRODUCT USED FOR UNKNOWN INDICATION
  14. CYMBALTA [Concomitant]
     Indication: PAIN
     Dosage: 20MG DAILY
  15. AMBIEN [Concomitant]
     Indication: INSOMNIA
     Dosage: NIGHTLY
  16. PRESCRIPTION VIT D [Concomitant]
     Indication: PRODUCT USED FOR UNKNOWN INDICATION
     Dosage: WEEKLY
  17. FISH OIL [Concomitant]
     Indication: PRODUCT USED FOR UNKNOWN INDICATION
  18. FLEXERIL [Concomitant]
     Indication: PAIN

REACTIONS (5)
  - ROAD TRAFFIC ACCIDENT [None]
  - MENTAL STATUS CHANGES [None]
  - FATIGUE [None]
  - VISION BLURRED [None]
  - HEART RATE ABNORMAL [None]
